FAERS Safety Report 12257986 (Version 1)
Quarter: 2016Q2

REPORT INFORMATION
  Report Type: Spontaneous
  Country: NL (occurrence: NL)
  Receive Date: 20160412
  Receipt Date: 20160412
  Transmission Date: 20160815
  Serious: Yes (Other)
  Sender: FDA-Public Use
  Company Number: NL-APOTEX-2016AP007597

PATIENT
  Age: 20 Year
  Sex: Male
  Weight: 72 kg

DRUGS (2)
  1. PAROXETINE. [Suspect]
     Active Substance: PAROXETINE
     Indication: ANXIETY DISORDER
     Dosage: 20 MG, QD
     Route: 065
     Dates: start: 1998
  2. PAROXETINE. [Suspect]
     Active Substance: PAROXETINE
     Indication: OBSESSIVE-COMPULSIVE DISORDER

REACTIONS (3)
  - Impulsive behaviour [Recovered/Resolved with Sequelae]
  - Suicidal ideation [Unknown]
  - Judgement impaired [Unknown]

NARRATIVE: CASE EVENT DATE: 20010909
